FAERS Safety Report 6664256-7 (Version None)
Quarter: 2010Q2

REPORT INFORMATION
  Report Type: 
  Country: None (occurrence: None)
  Receive Date: 20100401
  Receipt Date: 20100323
  Transmission Date: 20101027
  Serious: Yes (Hospitalization)
  Sender: FDA-Public Use
  Company Number: PHHY2010CA11006

PATIENT
  Sex: Male

DRUGS (13)
  1. EXJADE [Suspect]
     Indication: MYELOPROLIFERATIVE DISORDER
     Dosage: UNK
     Route: 048
     Dates: start: 20100221, end: 20100303
  2. ASPIRIN [Concomitant]
     Dosage: 81 MG, UNK
  3. BISOPROLOL [Concomitant]
     Dosage: 5 MG
  4. PLAVIX [Concomitant]
     Dosage: 75 MG, UNK
  5. SIMVASTATIN [Concomitant]
     Dosage: 40 MG, UNK
  6. RAMIPRIL [Concomitant]
     Dosage: 2.5 MG, UNK
  7. TAMSULOSIN HCL [Concomitant]
     Dosage: 0.4 MG, UNK
  8. PANTOPRAZOLE [Concomitant]
     Dosage: 40 MG, UNK
  9. NITROGLYCERIN [Concomitant]
     Dosage: 0.8 MG, UNK
  10. FUROSEMIDE [Concomitant]
     Dosage: 40 MG, UNK
  11. HYDREA [Concomitant]
     Dosage: 500 MG, UNK
  12. NITRO-SPRAY [Concomitant]
     Dosage: 0.4 MG, UNK
  13. EZETROL [Concomitant]
     Dosage: 10 MG, UNK

REACTIONS (4)
  - ASTHENIA [None]
  - CARDIAC DISORDER [None]
  - CHEST PAIN [None]
  - RASH [None]
